FAERS Safety Report 7338652-9 (Version None)
Quarter: 2011Q1

REPORT INFORMATION
  Report Type: 
  Country: None (occurrence: None)
  Receive Date: 20110308
  Receipt Date: 20101007
  Transmission Date: 20110831
  Serious: Yes (Other)
  Sender: FDA-Public Use
  Company Number: A0886471A

PATIENT
  Age: 50 Year
  Sex: Female

DRUGS (1)
  1. AVANDIA [Suspect]
     Dosage: 4MG TWICE PER DAY
     Route: 048
     Dates: end: 20050101

REACTIONS (1)
  - CEREBROVASCULAR ACCIDENT [None]
